FAERS Safety Report 25139214 (Version 1)
Quarter: 2025Q1

REPORT INFORMATION
  Report Type: Spontaneous
  Country: DE (occurrence: DE)
  Receive Date: 20250331
  Receipt Date: 20250331
  Transmission Date: 20250408
  Serious: Yes (Other)
  Sender: AUROBINDO
  Company Number: DE-APOGEPHA-20240259

PATIENT
  Age: 86 Year
  Sex: Female

DRUGS (3)
  1. PANTOPRAZOLE [Suspect]
     Active Substance: PANTOPRAZOLE
     Indication: Dyspepsia
     Route: 065
  2. PROPIVERINE HYDROCHLORIDE [Suspect]
     Active Substance: PROPIVERINE HYDROCHLORIDE
     Indication: Hypertonic bladder
     Dosage: 30 MILLIGRAM, ONCE A DAY
     Route: 048
     Dates: start: 2024
  3. XARELTO [Concomitant]
     Active Substance: RIVAROXABAN
     Indication: Atrial fibrillation
     Route: 065

REACTIONS (1)
  - Hallucination, visual [Recovered/Resolved]

NARRATIVE: CASE EVENT DATE: 20241101
